FAERS Safety Report 8090997-3 (Version None)
Quarter: 2012Q1

REPORT INFORMATION
  Report Type: 
  Country: None (occurrence: None)
  Receive Date: 20120128
  Receipt Date: 20110830
  Transmission Date: 20120608
  Serious: No
  Sender: FDA-Public Use
  Company Number: US-ABBOTT-11P-163-0845209-00

PATIENT
  Sex: Female

DRUGS (5)
  1. PREDNISONE TAB [Suspect]
     Indication: CROHN'S DISEASE
  2. IRON [Concomitant]
     Indication: PRODUCT USED FOR UNKNOWN INDICATION
  3. ASACOL [Suspect]
     Indication: PRODUCT USED FOR UNKNOWN INDICATION
  4. HUMIRA [Suspect]
     Indication: CROHN'S DISEASE
     Route: 058
     Dates: start: 20110313
  5. ENTOCORT EC [Suspect]
     Indication: CROHN'S DISEASE

REACTIONS (2)
  - ARTHRALGIA [None]
  - WEIGHT INCREASED [None]
